FAERS Safety Report 9350725 (Version 1)
Quarter: 2013Q2

REPORT INFORMATION
  Report Type: Spontaneous
  Country: US (occurrence: US)
  Receive Date: 20130617
  Receipt Date: 20130617
  Transmission Date: 20140414
  Serious: Yes (Other)
  Sender: FDA-Public Use
  Company Number: PHEH2013US012870

PATIENT
  Sex: Female

DRUGS (5)
  1. ZOMETA [Suspect]
     Dosage: UNK UKN, ONCE A YEAR
  2. ZOMETA [Suspect]
     Dosage: UNK UKN,
  3. ZOMETA [Suspect]
     Dosage: UNK UKN,
  4. ZOMETA [Suspect]
     Dosage: UNK UKN,
  5. ARIMIDEX [Concomitant]
     Dosage: UNK UKN, UNK

REACTIONS (1)
  - Ankle fracture [Unknown]
